FAERS Safety Report 4278553-6 (Version None)
Quarter: 2004Q1

REPORT INFORMATION
  Report Type: 
  Country: None (occurrence: None)
  Receive Date: 20040122
  Receipt Date: 20040108
  Transmission Date: 20041129
  Serious: Yes (Hospitalization)
  Sender: FDA-Public Use
  Company Number: 2004-111730-NL

PATIENT
  Age: 26 Year
  Sex: Female

DRUGS (2)
  1. MENOTROPINS [Suspect]
     Dosage: DF
     Dates: start: 20030201
  2. HCG [Suspect]
     Dosage: DF
     Dates: start: 20030217

REACTIONS (6)
  - CEREBRAL INFARCTION [None]
  - ECHOCARDIOGRAM ABNORMAL [None]
  - HAEMOCONCENTRATION [None]
  - HEMIANOPIA HOMONYMOUS [None]
  - INTRACARDIAC THROMBUS [None]
  - OVARIAN HYPERSTIMULATION SYNDROME [None]
